FAERS Safety Report 7473191-6 (Version None)
Quarter: 2011Q2

REPORT INFORMATION
  Report Type: 
  Country: None (occurrence: None)
  Receive Date: 20110511
  Receipt Date: 20110503
  Transmission Date: 20111010
  Serious: Yes (Hospitalization, Other)
  Sender: FDA-Public Use
  Company Number: A0917205A

PATIENT
  Age: 63 Year
  Sex: Female
  Weight: 63.6 kg

DRUGS (1)
  1. TYKERB [Suspect]
     Dosage: 1250MG PER DAY
     Route: 048

REACTIONS (3)
  - DIARRHOEA [None]
  - ADVERSE DRUG REACTION [None]
  - HOSPITALISATION [None]
